FAERS Safety Report 4709915-8 (Version None)
Quarter: 2005Q3

REPORT INFORMATION
  Report Type: 
  Country: None (occurrence: None)
  Receive Date: 20050708
  Receipt Date: 20050629
  Transmission Date: 20060218
  Serious: Yes (Other)
  Sender: FDA-Public Use
  Company Number: BE-ROCHE-409038

PATIENT
  Age: 61 Year
  Sex: Female
  Weight: 58.5 kg

DRUGS (9)
  1. DACLIZUMAB [Suspect]
     Route: 042
     Dates: start: 20050508
  2. MYCOPHENOLATE MOFETIL [Suspect]
     Route: 065
     Dates: start: 20050508
  3. SIROLIMUS [Suspect]
     Route: 048
     Dates: start: 20050509
  4. OMEPRAZOLE [Suspect]
     Indication: DRUG USE FOR UNKNOWN INDICATION
     Route: 065
     Dates: end: 20050520
  5. KREDEX [Concomitant]
     Dates: start: 20050508
  6. FELODIPINE [Concomitant]
     Dates: start: 20050512
  7. COTRIM DS [Concomitant]
     Dates: start: 20050510
  8. LIPITOR [Concomitant]
     Dates: start: 20050508
  9. DELTACORTRIL [Concomitant]
     Dates: start: 20050509

REACTIONS (1)
  - HEPATIC ENZYME ABNORMAL [None]
